FAERS Safety Report 6329191-2 (Version None)
Quarter: 2009Q3

REPORT INFORMATION
  Report Type: 
  Country: None (occurrence: None)
  Receive Date: 20090825
  Receipt Date: 20090825
  Transmission Date: 20100115
  Serious: No
  Sender: FDA-Public Use
  Company Number: None

PATIENT
  Sex: Female
  Weight: 82.9 kg

DRUGS (2)
  1. CARBOPLATIN [Suspect]
     Dosage: 485 MG
     Dates: end: 20090817
  2. ETOPOSIDE [Suspect]
     Dosage: 570 MG
     Dates: end: 20090819

REACTIONS (2)
  - LEUKOPENIA [None]
  - NEUTROPENIA [None]
